FAERS Safety Report 5619700-0 (Version None)
Quarter: 2008Q1

REPORT INFORMATION
  Report Type: 
  Country: None (occurrence: None)
  Receive Date: 20080208
  Receipt Date: 20071024
  Transmission Date: 20080703
  Serious: No
  Sender: FDA-Public Use
  Company Number: A0690598A

PATIENT
  Age: 7 Year
  Sex: Male

DRUGS (1)
  1. ALTABAX [Suspect]
     Indication: IMPETIGO
     Dosage: 1APP SINGLE DOSE
     Route: 061
     Dates: start: 20070101

REACTIONS (2)
  - CRYING [None]
  - SKIN BURNING SENSATION [None]
